FAERS Safety Report 23686918 (Version 1)
Quarter: 2024Q1

REPORT INFORMATION
  Report Type: Spontaneous
  Country: US (occurrence: US)
  Receive Date: 20240329
  Receipt Date: 20240329
  Transmission Date: 20240409
  Serious: No
  Sender: FDA-Public Use
  Company Number: US-LUPIN PHARMACEUTICALS INC.-2024-00712

PATIENT
  Sex: Female

DRUGS (1)
  1. TIOTROPIUM BROMIDE [Suspect]
     Active Substance: TIOTROPIUM BROMIDE
     Indication: Product used for unknown indication
     Dosage: UNK

REACTIONS (5)
  - Device mechanical issue [Unknown]
  - Device difficult to use [Unknown]
  - Device delivery system issue [Unknown]
  - Product packaging difficult to open [Unknown]
  - No adverse event [Unknown]
